FAERS Safety Report 13618590 (Version 1)
Quarter: 2017Q2

REPORT INFORMATION
  Report Type: Spontaneous
  Country: US (occurrence: US)
  Receive Date: 20170606
  Receipt Date: 20170606
  Transmission Date: 20170830
  Serious: No
  Sender: FDA-Public Use
  Company Number: US-LEXICON PHARMACEUTICALS, INC-17-1606-00153

PATIENT
  Age: 73 Year
  Sex: Male

DRUGS (14)
  1. TELOTRISTAT ETHYL [Suspect]
     Active Substance: TELOTRISTAT ETHYL
     Indication: NEUROENDOCRINE TUMOUR
     Route: 048
     Dates: start: 20170311
  2. SOMATULINE [Concomitant]
     Active Substance: LANREOTIDE ACETATE
  3. ACETEMIN [Concomitant]
  4. COREG [Concomitant]
     Active Substance: CARVEDILOL
  5. LISINOPRIL. [Concomitant]
     Active Substance: LISINOPRIL
  6. SANDOSTATIN [Concomitant]
     Active Substance: OCTREOTIDE ACETATE
  7. PRILOSEC [Concomitant]
     Active Substance: OMEPRAZOLE MAGNESIUM
  8. ALDACTONE [Concomitant]
     Active Substance: SPIRONOLACTONE
  9. TEMODAR [Concomitant]
     Active Substance: TEMOZOLOMIDE
  10. HEPARIN [Concomitant]
     Active Substance: HEPARIN SODIUM
  11. XELODA [Concomitant]
     Active Substance: CAPECITABINE
  12. EMLA [Concomitant]
     Active Substance: LIDOCAINE\PRILOCAINE
  13. ZOFRAN [Concomitant]
     Active Substance: ONDANSETRON HYDROCHLORIDE
  14. LOMOTIL [Concomitant]
     Active Substance: ATROPINE SULFATE\DIPHENOXYLATE HYDROCHLORIDE

REACTIONS (1)
  - Flushing [Unknown]

NARRATIVE: CASE EVENT DATE: 20170315
